FAERS Safety Report 6503747-6 (Version None)
Quarter: 2009Q4

REPORT INFORMATION
  Report Type: 
  Country: None (occurrence: None)
  Receive Date: 20091217
  Receipt Date: 20091211
  Transmission Date: 20100525
  Serious: Yes (Hospitalization)
  Sender: FDA-Public Use
  Company Number: JP-BAYER-200912045BYL

PATIENT
  Age: 59 Year
  Sex: Male
  Weight: 66 kg

DRUGS (7)
  1. NEXAVAR [Suspect]
     Indication: HEPATIC NEOPLASM MALIGNANT
     Dosage: TOTAL DAILY DOSE: 800 MG  UNIT DOSE: 200 MG
     Route: 048
     Dates: start: 20090613, end: 20090618
  2. NEXAVAR [Suspect]
     Dosage: TOTAL DAILY DOSE: 400 MG  UNIT DOSE: 200 MG
     Route: 048
     Dates: start: 20090702, end: 20090820
  3. NEXAVAR [Suspect]
     Dosage: UNIT DOSE: 200 MG
     Route: 048
     Dates: start: 20090820
  4. RENIVACE [Concomitant]
     Dosage: UNIT DOSE: 5 MG
     Route: 048
  5. MEFENAMIC ACID [Concomitant]
     Dosage: UNIT DOSE: 250 MG
     Route: 048
     Dates: start: 20090625, end: 20090625
  6. FUCIDIN LEO [Concomitant]
     Dosage: UNIT DOSE: 2 %
     Route: 061
     Dates: start: 20090625, end: 20090625
  7. NAIXAN [Concomitant]
     Indication: TUMOUR ASSOCIATED FEVER
     Dosage: UNIT DOSE: 100 MG
     Route: 048
     Dates: start: 20090917

REACTIONS (4)
  - ERYTHEMA MULTIFORME [None]
  - HEPATIC FUNCTION ABNORMAL [None]
  - PALMAR-PLANTAR ERYTHRODYSAESTHESIA SYNDROME [None]
  - PYREXIA [None]
